FAERS Safety Report 9786683 (Version 2)
Quarter: 2014Q1

REPORT INFORMATION
  Report Type: Report from Study
  Country: US (occurrence: US)
  Receive Date: 20131227
  Receipt Date: 20140120
  Transmission Date: 20141002
  Serious: Yes (Death)
  Sender: FDA-Public Use
  Company Number: US-ABBVIE-13P-163-1183653-00

PATIENT
  Sex: Male

DRUGS (7)
  1. GENGRAF [Suspect]
     Indication: RENAL TRANSPLANT
     Dates: end: 20130930
  2. INSULIN [Concomitant]
     Indication: DIABETES MELLITUS
  3. METOPROLOL [Concomitant]
     Indication: HYPERTENSION
  4. LASIX [Concomitant]
     Indication: CARDIAC FAILURE CONGESTIVE
     Dates: end: 20130930
  5. PRAVASTATIN [Concomitant]
     Indication: HYPERLIPIDAEMIA
     Dates: end: 20130930
  6. ANTIDEPRESSANTS [Concomitant]
     Indication: DEPRESSION
     Dates: end: 20130930
  7. COUMADIN [Concomitant]
     Indication: CEREBROVASCULAR ACCIDENT
     Dates: end: 20130930

REACTIONS (1)
  - Death [Fatal]
